FAERS Safety Report 5860430-8 (Version None)
Quarter: 2008Q3

REPORT INFORMATION
  Report Type: 
  Country: None (occurrence: None)
  Receive Date: 20080827
  Receipt Date: 20080821
  Transmission Date: 20090109
  Serious: Yes (Hospitalization)
  Sender: FDA-Public Use
  Company Number: US-BOEHRINGER INGELHEIM GMBH, GERMANY-2008-BP-13284BP

PATIENT
  Sex: Male

DRUGS (16)
  1. SPIRIVA [Suspect]
     Indication: CHRONIC OBSTRUCTIVE PULMONARY DISEASE
     Route: 055
     Dates: start: 20050101
  2. ADVAIR DISKUS 100/50 [Suspect]
     Indication: CHRONIC OBSTRUCTIVE PULMONARY DISEASE
     Route: 055
     Dates: start: 20030101, end: 20060101
  3. PROSCAR [Suspect]
     Indication: PROSTATOMEGALY
     Dates: start: 20070501, end: 20070501
  4. PULMICORT-100 [Suspect]
     Indication: GASTROENTERITIS
     Dates: start: 20070901, end: 20070901
  5. ALBUTEROL [Concomitant]
     Indication: CHRONIC OBSTRUCTIVE PULMONARY DISEASE
     Route: 055
     Dates: start: 20070901
  6. IMDUR [Concomitant]
     Indication: CHEST DISCOMFORT
     Dates: start: 20030101
  7. TOPROL-XL [Concomitant]
     Indication: CARDIAC DISORDER
  8. GLUCOTROL XL [Concomitant]
     Indication: DIABETES MELLITUS
  9. ASPIRIN [Concomitant]
     Indication: CARDIAC DISORDER
  10. PLAVIX [Concomitant]
     Indication: CORONARY ARTERIAL STENT INSERTION
  11. NORVASC [Concomitant]
     Indication: HYPERTENSION
  12. LASIX [Concomitant]
     Indication: CARDIAC FAILURE CONGESTIVE
  13. FLOMAX [Concomitant]
     Indication: PROSTATOMEGALY
  14. LIPITOR [Concomitant]
     Indication: BLOOD CHOLESTEROL INCREASED
  15. NITROGLYCERIN [Concomitant]
     Indication: CARDIAC DISORDER
  16. CLINORIL [Concomitant]
     Indication: ARTHRITIS

REACTIONS (7)
  - CANDIDIASIS [None]
  - CHEST DISCOMFORT [None]
  - DIARRHOEA [None]
  - DRUG INEFFECTIVE [None]
  - NAUSEA [None]
  - PYREXIA [None]
  - VOMITING [None]
